FAERS Safety Report 8859500 (Version 2)
Quarter: 2012Q4

REPORT INFORMATION
  Report Type: 
  Country: FR (occurrence: FR)
  Receive Date: 20121024
  Receipt Date: 20121114
  Transmission Date: 20130627
  Serious: Yes (Hospitalization)
  Sender: FDA-Public Use
  Company Number: FR-ROCHE-1147811

PATIENT
  Sex: Female

DRUGS (6)
  1. ZELBORAF [Suspect]
     Indication: MALIGNANT MELANOMA
     Route: 048
     Dates: start: 20120821
  2. LODOZ [Concomitant]
     Route: 065
  3. TAHOR [Concomitant]
     Route: 065
  4. INEXIUM [Concomitant]
     Route: 065
  5. CORTANCYL [Concomitant]
     Route: 065
  6. DIFFU-K [Concomitant]
     Route: 065

REACTIONS (4)
  - Hepatocellular injury [Unknown]
  - Rash maculo-papular [Recovering/Resolving]
  - Photosensitivity reaction [Recovered/Resolved]
  - Neutrophil count increased [Recovered/Resolved]
